FAERS Safety Report 18959585 (Version 2)
Quarter: 2021Q4

REPORT INFORMATION
  Report Type: Spontaneous
  Country: US (occurrence: US)
  Receive Date: 20210302
  Receipt Date: 20211011
  Transmission Date: 20220303
  Serious: No
  Sender: FDA-Public Use
  Company Number: US-ALLERGAN-2106567US

PATIENT
  Sex: Female

DRUGS (1)
  1. DURYSTA [Suspect]
     Active Substance: BIMATOPROST
     Indication: Product used for unknown indication
     Dosage: 10 ?G, SINGLE
     Route: 031

REACTIONS (3)
  - Product administered at inappropriate site [Unknown]
  - Complication of device insertion [Unknown]
  - Product contamination physical [Unknown]
